FAERS Safety Report 4326832-6 (Version None)
Quarter: 2004Q1

REPORT INFORMATION
  Report Type: 
  Country: None (occurrence: None)
  Receive Date: 20040322
  Receipt Date: 20031215
  Transmission Date: 20041129
  Serious: Yes (Hospitalization)
  Sender: FDA-Public Use
  Company Number: PHEH2003US11115

PATIENT
  Age: 54 Year
  Sex: Female

DRUGS (3)
  1. ZOMETA [Suspect]
     Indication: HYPERCALCAEMIA OF MALIGNANCY
     Dosage: INTRAVENOUS
     Route: 042
     Dates: start: 20030904
  2. AREDIA [Suspect]
     Indication: HYPERCALCAEMIA OF MALIGNANCY
     Dosage: INTRAVENOUS
     Route: 042
     Dates: start: 20030917
  3. TAXOTERE [Concomitant]

REACTIONS (4)
  - BLOOD CALCIUM INCREASED [None]
  - DRUG INEFFECTIVE [None]
  - FATIGUE [None]
  - VOMITING [None]
